FAERS Safety Report 14947760 (Version 2)
Quarter: 2018Q3

REPORT INFORMATION
  Report Type: Spontaneous
  Country: GB (occurrence: GB)
  Receive Date: 20180529
  Receipt Date: 20180806
  Transmission Date: 20181010
  Serious: Yes (Other)
  Sender: FDA-Public Use
  Company Number: GB-SA-2018SA139533

PATIENT
  Age: 54 Year
  Sex: Female

DRUGS (2)
  1. ETANERCEPT [Suspect]
     Active Substance: ETANERCEPT
     Dosage: UNK
     Dates: start: 201705, end: 2017
  2. RIFAMPICIN [Suspect]
     Active Substance: RIFAMPIN
     Indication: LATENT TUBERCULOSIS

REACTIONS (5)
  - Pain [Unknown]
  - Diabetes mellitus [Unknown]
  - Bedridden [Unknown]
  - Influenza like illness [Unknown]
  - Injection site reaction [Recovered/Resolved]
